FAERS Safety Report 4282249-4 (Version None)
Quarter: 2004Q1

REPORT INFORMATION
  Report Type: 
  Country: None (occurrence: None)
  Receive Date: 20040112
  Receipt Date: 20030114
  Transmission Date: 20041129
  Serious: Yes (Other)
  Sender: FDA-Public Use
  Company Number: NSADSS2003002472

PATIENT
  Age: 70 Year
  Sex: Female

DRUGS (1)
  1. REOPRO [Suspect]
     Indication: ILL-DEFINED DISORDER
     Dosage: 1 IN 1 AS NECESSARY, INTRAVENOUS BOLUS
     Route: 040
     Dates: start: 20030112, end: 20030112

REACTIONS (1)
  - DRUG INEFFECTIVE [None]
